FAERS Safety Report 17511246 (Version 2)
Quarter: 2020Q2

REPORT INFORMATION
  Report Type: Spontaneous
  Country: NL (occurrence: NL)
  Receive Date: 20200306
  Receipt Date: 20200605
  Transmission Date: 20200713
  Serious: Yes (Other)
  Sender: FDA-Public Use
  Company Number: NL-TEVA-2020-NL-1195545

PATIENT
  Age: 41 Year
  Sex: Male
  Weight: 92.5 kg

DRUGS (7)
  1. COLECALCIFEROL [Concomitant]
     Active Substance: CHOLECALCIFEROL
     Dosage: 800 UNITS, THERAPY START DATE : ASKU, THERAPY END DATE : ASKU
  2. PRIADEL (LITHIUMCARBONAAT) [Concomitant]
     Dosage: TABLET WITH REGULATED RELEASE, 400 MG (MILLIGRAMS), THERAPY START DATE : ASKU, THERAPY END DATE : AS
  3. MACROGOL/ZOUTEN [Concomitant]
     Dosage: DRANK, THERAPY START DATE : ASKU, THERAPY END DATE : ASKU
  4. CLOZAPINE. [Suspect]
     Active Substance: CLOZAPINE
     Dosage: TABLET 100 MG + TABLET 25 MG, THERAPY END DATE : ASKU
     Route: 065
     Dates: start: 20200117
  5. CLOZAPINE. [Suspect]
     Active Substance: CLOZAPINE
     Indication: BIPOLAR DISORDER
     Dosage: TABLET 100 MG + TABLET 25 MG, THERAPY END DATE : ASKU
     Route: 065
     Dates: start: 20200117
  6. NADROPARINE [Concomitant]
     Active Substance: NADROPARIN
     Dosage: INJECTION FLUID, 9500 I/ML (UNITS PER MILLILITER), THERAPY START DATE : ASKU, THERAPY END DATE : ASK
  7. CLONAZEPAM. [Concomitant]
     Active Substance: CLONAZEPAM
     Dosage: 0,5 MG (MILLIGRAM), THERAPY START DATE : ASKU, THERAPY END DATE : ASKU

REACTIONS (8)
  - Diarrhoea [Not Recovered/Not Resolved]
  - Renal impairment [Recovering/Resolving]
  - Myalgia [Recovering/Resolving]
  - Confusional state [Recovering/Resolving]
  - Musculoskeletal stiffness [Recovering/Resolving]
  - Tremor [Recovering/Resolving]
  - Vomiting [Recovered/Resolved]
  - Pyrexia [Not Recovered/Not Resolved]

NARRATIVE: CASE EVENT DATE: 20200131
